FAERS Safety Report 10420031 (Version 2)
Quarter: 2014Q3

REPORT INFORMATION
  Report Type: Spontaneous
  Country: CH (occurrence: CH)
  Receive Date: 20140829
  Receipt Date: 20140909
  Transmission Date: 20150326
  Serious: Yes (Death)
  Sender: FDA-Public Use
  Company Number: CH-ASTRAZENECA-2014SE63726

PATIENT
  Age: 30581 Day
  Sex: Female

DRUGS (7)
  1. ASPIRIN. [Interacting]
     Active Substance: ASPIRIN
     Route: 048
     Dates: start: 20140520, end: 20140520
  2. CRESTOR [Concomitant]
     Active Substance: ROSUVASTATIN CALCIUM
     Route: 048
     Dates: end: 20140520
  3. BELOC [Concomitant]
     Active Substance: METOPROLOL TARTRATE
     Route: 048
     Dates: start: 20140520, end: 20140520
  4. BELOC ZOK [Concomitant]
     Active Substance: METOPROLOL SUCCINATE
  5. ATACAND [Concomitant]
     Active Substance: CANDESARTAN CILEXETIL
     Route: 048
     Dates: end: 20140520
  6. BRILIQUE [Suspect]
     Active Substance: TICAGRELOR
     Route: 048
     Dates: start: 20140520, end: 20140520
  7. LIQUEMINE [Interacting]
     Active Substance: HEPARIN SODIUM
     Route: 041
     Dates: start: 20140520, end: 20140520

REACTIONS (2)
  - Drug interaction [Fatal]
  - Haemorrhagic stroke [Fatal]

NARRATIVE: CASE EVENT DATE: 20140520
